FAERS Safety Report 4760362-2 (Version None)
Quarter: 2005Q3

REPORT INFORMATION
  Report Type: 
  Country: None (occurrence: None)
  Receive Date: 20050902
  Receipt Date: 20050823
  Transmission Date: 20060218
  Serious: Yes (Hospitalization)
  Sender: FDA-Public Use
  Company Number: DE-ABBOTT-05P-062-0309147-00

PATIENT
  Sex: Female

DRUGS (6)
  1. ERGENYL CHRONO TABLETS [Suspect]
     Indication: EPILEPSY
     Route: 048
     Dates: start: 19940101
  2. LEVOTHYROXINE SODIUM [Suspect]
     Indication: DRUG USE FOR UNKNOWN INDICATION
     Route: 048
     Dates: start: 20020101, end: 20040401
  3. JODTHYROX [Suspect]
     Indication: HYPOTHYROIDISM
     Route: 048
     Dates: start: 20040401, end: 20050101
  4. JODTHYROX [Suspect]
     Route: 048
     Dates: start: 20050101, end: 20050501
  5. ETHOSUXIMIDE [Concomitant]
     Indication: PETIT MAL EPILEPSY
     Dates: start: 19910101, end: 19940101
  6. VALPROATE SODIUM [Concomitant]
     Indication: PETIT MAL EPILEPSY
     Route: 048
     Dates: start: 19940101, end: 19940101

REACTIONS (12)
  - ABDOMINAL ADHESIONS [None]
  - ABDOMINAL PAIN [None]
  - ABDOMINAL PAIN UPPER [None]
  - APPENDICITIS [None]
  - CHILLS [None]
  - CONSTIPATION [None]
  - DIARRHOEA [None]
  - NAUSEA [None]
  - OVARIAN CYST [None]
  - PYREXIA [None]
  - RETCHING [None]
  - VOMITING [None]
